FAERS Safety Report 9378683 (Version 2)
Quarter: 2013Q3

REPORT INFORMATION
  Report Type: Spontaneous
  Country: BR (occurrence: BR)
  Receive Date: 20130702
  Receipt Date: 20130731
  Transmission Date: 20140515
  Serious: Yes (Other)
  Sender: FDA-Public Use
  Company Number: BR-ASTRAZENECA-2013SE48564

PATIENT
  Age: 40 Year
  Sex: Male
  Weight: 140 kg

DRUGS (5)
  1. VIMOVO [Suspect]
     Indication: OSTEOARTHRITIS
     Dosage: 500MG + 20MG, TWO TIMES A DAY
     Route: 048
     Dates: start: 20130619, end: 20130622
  2. HYDROCHLOROTHIAZIDE [Suspect]
     Indication: HYPERTENSION
     Route: 065
     Dates: start: 2003
  3. DICLOFENAC SODIUM [Suspect]
     Indication: OSTEOARTHRITIS
     Route: 065
     Dates: start: 2003, end: 201306
  4. DICLOFENAC SODIUM [Suspect]
     Indication: OSTEOARTHRITIS
     Dosage: GENERIC FORM
     Route: 065
     Dates: start: 201306
  5. CAPTOPRIL [Concomitant]
     Indication: HYPERTENSION
     Dates: start: 2003

REACTIONS (4)
  - Osteoarthritis [Not Recovered/Not Resolved]
  - Weight increased [Unknown]
  - Swelling [Not Recovered/Not Resolved]
  - Muscular weakness [Recovered/Resolved]
